FAERS Safety Report 5287625-9 (Version None)
Quarter: 2007Q1

REPORT INFORMATION
  Report Type: 
  Country: None (occurrence: None)
  Receive Date: 20070105
  Receipt Date: 20061003
  Transmission Date: 20070707
  Serious: Yes (Other)
  Sender: FDA-Public Use
  Company Number: 2006104691

PATIENT
  Age: 48 Year
  Sex: Female
  Weight: 73.4827 kg

DRUGS (4)
  1. ZMAX [Suspect]
     Indication: COUGH
     Dosage: 2 GRAM (2 GRAM, 1 IN 1 D), ORAL
     Route: 048
     Dates: start: 20060825, end: 20060825
  2. ZMAX [Suspect]
     Indication: PHARYNGOLARYNGEAL PAIN
     Dosage: 2 GRAM (2 GRAM, 1 IN 1 D), ORAL
     Route: 048
     Dates: start: 20060825, end: 20060825
  3. PREDNISONE TAB [Suspect]
     Indication: HYPERSENSITIVITY
     Dosage: 10 MG, ORAL
     Route: 048
     Dates: start: 20060801
  4. AMOXICILLIN [Concomitant]

REACTIONS (4)
  - HYPERSENSITIVITY [None]
  - MALAISE [None]
  - NERVOUSNESS [None]
  - URTICARIA [None]
